FAERS Safety Report 14783144 (Version 1)
Quarter: 2018Q2

REPORT INFORMATION
  Report Type: Spontaneous
  Country: FR (occurrence: FR)
  Receive Date: 20180420
  Receipt Date: 20180420
  Transmission Date: 20180711
  Serious: Yes (Other)
  Sender: FDA-Public Use
  Company Number: FR-MERCK KGAA-2046138

PATIENT
  Age: 62 Year
  Sex: Female

DRUGS (1)
  1. NOVOTHYROX [Suspect]
     Active Substance: LEVOTHYROXINE SODIUM
     Indication: PRODUCT USED FOR UNKNOWN INDICATION

REACTIONS (19)
  - Arthralgia [None]
  - Tremor [None]
  - Depression [None]
  - Muscle spasms [None]
  - Asthenia [None]
  - Impaired driving ability [None]
  - Irritability [None]
  - Alopecia [None]
  - Muscle disorder [None]
  - Heart rate increased [None]
  - Apathy [None]
  - Blood glucose increased [None]
  - Fatigue [None]
  - Mood swings [None]
  - Asthenia [None]
  - Loss of personal independence in daily activities [None]
  - Decreased appetite [None]
  - Social avoidant behaviour [None]
  - Insomnia [None]

NARRATIVE: CASE EVENT DATE: 20170224
